FAERS Safety Report 21771989 (Version 1)
Quarter: 2022Q4

REPORT INFORMATION
  Report Type: Report from Study
  Country: IL (occurrence: IL)
  Receive Date: 20221223
  Receipt Date: 20221223
  Transmission Date: 20230112
  Serious: Yes (Death)
  Sender: FDA-Public Use
  Company Number: IL-ABBVIE-22K-082-4318320-00

PATIENT
  Age: 85 Year
  Sex: Female
  Weight: 62 kg

DRUGS (10)
  1. VENETOCLAX [Suspect]
     Active Substance: VENETOCLAX
     Indication: Acute myeloid leukaemia
     Dosage: RAMP UP
     Route: 048
     Dates: start: 20220208, end: 20220208
  2. VENETOCLAX [Suspect]
     Active Substance: VENETOCLAX
     Indication: Acute myeloid leukaemia
     Dosage: RAMP UP
     Route: 048
     Dates: start: 20220209, end: 20220209
  3. VENETOCLAX [Suspect]
     Active Substance: VENETOCLAX
     Indication: Acute myeloid leukaemia
     Dosage: 400 MILLIGRAM
     Route: 048
     Dates: start: 20220210, end: 20220220
  4. AZACITIDINE [Suspect]
     Active Substance: AZACITIDINE
     Indication: Acute myeloid leukaemia
     Dosage: 125MG
     Route: 058
     Dates: start: 20220208, end: 20220214
  5. LYRICA [Concomitant]
     Active Substance: PREGABALIN
     Indication: Neuralgia
     Route: 065
     Dates: start: 20220128, end: 20220220
  6. NALOXONE HYDROCHLORIDE\OXYCODONE HYDROCHLORIDE [Concomitant]
     Active Substance: NALOXONE HYDROCHLORIDE\OXYCODONE HYDROCHLORIDE
     Indication: Pain
     Dates: start: 20220207, end: 20220220
  7. Pramin [Concomitant]
     Indication: Nausea
     Dates: start: 20220207, end: 20220207
  8. Amlo [Concomitant]
     Indication: Hypertension
     Dates: start: 20220207, end: 20220207
  9. RENVELA [Concomitant]
     Active Substance: SEVELAMER CARBONATE
     Indication: Blood phosphorus increased
     Dates: start: 20220211, end: 20220213
  10. ENOXAPARIN SODIUM [Concomitant]
     Active Substance: ENOXAPARIN SODIUM
     Indication: Anticoagulant therapy
     Dates: start: 20220219

REACTIONS (5)
  - Disease progression [Fatal]
  - COVID-19 [Unknown]
  - Tumour lysis syndrome [Recovered/Resolved]
  - Oedema peripheral [Unknown]
  - Nausea [Recovered/Resolved]

NARRATIVE: CASE EVENT DATE: 20220208
